FAERS Safety Report 7422753-0 (Version None)
Quarter: 2011Q2

REPORT INFORMATION
  Report Type: 
  Country: None (occurrence: None)
  Receive Date: 20110414
  Receipt Date: 20110414
  Transmission Date: 20111010
  Serious: Yes (Life-Threatening)
  Sender: FDA-Public Use
  Company Number: None

PATIENT
  Sex: Male
  Weight: 70 kg

DRUGS (8)
  1. ZOSYN [Concomitant]
  2. PRECEDEX [Suspect]
     Indication: SEDATION
     Dosage: 70MCG ONCE IV INFUSION
     Dates: start: 20110318
  3. VANCOMYCIN [Concomitant]
  4. LASIX [Concomitant]
  5. FENTANYL [Concomitant]
  6. FLAGYL [Concomitant]
  7. ARIXTRA [Concomitant]
  8. PROTONIX [Concomitant]

REACTIONS (1)
  - CARDIAC ARREST [None]
